FAERS Safety Report 9685973 (Version 2)
Quarter: 2013Q4

REPORT INFORMATION
  Report Type: Spontaneous
  Country: US (occurrence: US)
  Receive Date: 20131113
  Receipt Date: 20131113
  Transmission Date: 20140711
  Serious: No
  Sender: FDA-Public Use
  Company Number: US-ALLERGAN-1307327US

PATIENT
  Age: 67 Year
  Sex: Female

DRUGS (5)
  1. COMBIGAN[R] [Suspect]
     Indication: GLAUCOMA
     Dosage: 2 GTT, UNK
     Route: 047
     Dates: start: 201207, end: 201301
  2. LATANOPROST [Concomitant]
     Indication: GLAUCOMA
     Dosage: UNK
  3. KETOROLAC TROMETHAMINE [Concomitant]
     Indication: GLAUCOMA
     Dosage: UNK
  4. HYPERTENSION MEDICATION NOS [Concomitant]
     Indication: HYPERTENSION
     Dosage: UNK
  5. HIGH CHOLESTEROL MEDICATION NOS [Concomitant]
     Indication: BLOOD CHOLESTEROL INCREASED
     Dosage: UNK

REACTIONS (8)
  - Blister [Recovering/Resolving]
  - Scab [Recovering/Resolving]
  - Scleral hyperaemia [Recovering/Resolving]
  - Eyelids pruritus [Recovering/Resolving]
  - Eyelid oedema [Recovering/Resolving]
  - Eye irritation [Recovering/Resolving]
  - Lacrimation increased [Recovering/Resolving]
  - Eye irritation [Recovering/Resolving]
